FAERS Safety Report 8801581 (Version 2)
Quarter: 2015Q3

REPORT INFORMATION
  Report Type: Report from Study
  Country: US (occurrence: US)
  Receive Date: 20120921
  Receipt Date: 20150703
  Transmission Date: 20151125
  Serious: Yes (Death)
  Sender: FDA-Public Use
  Company Number: US-ROCHE-1100695

PATIENT
  Sex: Male

DRUGS (16)
  1. DEXAMETHASONE (ORAL) [Concomitant]
     Active Substance: DEXAMETHASONE
     Dosage: DAY BEFORE, DAY OF AND DAY AFTER CHEMOPTHERAPY
     Route: 048
     Dates: start: 20081021
  2. LOTRIMIN CREAM (UNITED STATES) [Concomitant]
     Route: 065
     Dates: start: 20071213
  3. PREVACID [Concomitant]
     Active Substance: LANSOPRAZOLE
     Route: 048
  4. MILK OF MAGNESIA [Concomitant]
     Active Substance: MAGNESIUM HYDROXIDE
     Dosage: PRN
     Route: 048
  5. AVASTIN [Suspect]
     Active Substance: BEVACIZUMAB
     Indication: LUNG NEOPLASM MALIGNANT
     Route: 065
     Dates: start: 20070529
  6. LORTAB (UNITED STATES) [Concomitant]
     Route: 048
     Dates: start: 20081119
  7. TAXOTERE [Concomitant]
     Active Substance: DOCETAXEL
     Route: 065
     Dates: start: 20060916, end: 20070626
  8. AVASTIN [Suspect]
     Active Substance: BEVACIZUMAB
     Indication: METASTASES TO LYMPH NODES
  9. VYTORIN [Concomitant]
     Active Substance: EZETIMIBE\SIMVASTATIN
     Dosage: 10-40 MG
     Route: 048
  10. COMPAZINE [Concomitant]
     Active Substance: PROCHLORPERAZINE MALEATE
     Route: 048
     Dates: start: 20080604
  11. MAALOX (ALUMINUM HYDROXIDE/MAGNESIUM HYDROXIDE) [Concomitant]
     Dosage: 225-200-25 MG/5 ML
     Route: 048
  12. MEGACE ES [Concomitant]
     Active Substance: MEGESTROL ACETATE
     Dosage: 625 MG/5ML
     Route: 048
     Dates: start: 20080623
  13. HEPARIN SODIUM. [Concomitant]
     Active Substance: HEPARIN SODIUM
     Dosage: 10000 UNIT/ML
     Route: 065
     Dates: start: 20060626
  14. LEVOXYL [Concomitant]
     Active Substance: LEVOTHYROXINE SODIUM
     Route: 048
     Dates: start: 20080909
  15. AMBIEN [Concomitant]
     Active Substance: ZOLPIDEM TARTRATE
     Route: 048
     Dates: start: 20080902
  16. DIFLUCAN [Concomitant]
     Active Substance: FLUCONAZOLE
     Route: 048
     Dates: start: 20080121

REACTIONS (14)
  - Constipation [Unknown]
  - Dysphonia [Unknown]
  - Dyspnoea [Unknown]
  - Death [Fatal]
  - Fatigue [Unknown]
  - Night sweats [Unknown]
  - Rhinitis [Unknown]
  - Neck pain [Unknown]
  - Temperature intolerance [Unknown]
  - Dyspepsia [Unknown]
  - Off label use [Unknown]
  - Dizziness [Unknown]
  - Asthenia [Unknown]
  - Arthralgia [Unknown]
